FAERS Safety Report 7277279-4 (Version None)
Quarter: 2011Q1

REPORT INFORMATION
  Report Type: 
  Country: None (occurrence: None)
  Receive Date: 20110202
  Receipt Date: 20110202
  Transmission Date: 20110831
  Serious: No
  Sender: FDA-Public Use
  Company Number: None

PATIENT
  Age: 46 Year
  Sex: Female
  Weight: 55.7924 kg

DRUGS (2)
  1. CITALOPRAM HYDROBROMIDE [Suspect]
     Indication: GENERALISED ANXIETY DISORDER
     Dosage: 10 MG DAILY PO
     Route: 048
     Dates: start: 20101202, end: 20101215
  2. LORAZEPAM [Suspect]

REACTIONS (7)
  - DRUG DOSE OMISSION [None]
  - TENSION [None]
  - SUICIDAL IDEATION [None]
  - MUSCLE SPASMS [None]
  - RESTLESSNESS [None]
  - MUSCLE RIGIDITY [None]
  - OBSESSIVE THOUGHTS [None]
